FAERS Safety Report 6616542-4 (Version None)
Quarter: 2010Q1

REPORT INFORMATION
  Report Type: 
  Country: None (occurrence: None)
  Receive Date: 20100305
  Receipt Date: 20100222
  Transmission Date: 20100710
  Serious: Yes (Other)
  Sender: FDA-Public Use
  Company Number: US-PFIZER INC-2010023158

PATIENT
  Age: 48 Year
  Sex: Female

DRUGS (2)
  1. VERAPAMIL HCL [Suspect]
  2. K-DUR [Concomitant]
     Dosage: 10 MEQ, UNK

REACTIONS (2)
  - HYPERSENSITIVITY [None]
  - TORSADE DE POINTES [None]
